FAERS Safety Report 10095704 (Version 1)
Quarter: 2014Q2

REPORT INFORMATION
  Report Type: Spontaneous
  Country: US (occurrence: US)
  Receive Date: 20140422
  Receipt Date: 20140422
  Transmission Date: 20141212
  Serious: No
  Sender: FDA-Public Use
  Company Number: US-GILEAD-2013-0072428

PATIENT
  Age: 77 Year
  Sex: Female

DRUGS (2)
  1. LETAIRIS [Suspect]
     Indication: RAYNAUD^S PHENOMENON
     Dosage: 10 MG, QD
     Dates: start: 20130301
  2. LETAIRIS [Suspect]
     Dosage: 5 MG, QD
     Route: 048

REACTIONS (1)
  - Fluid retention [Unknown]
